FAERS Safety Report 18511521 (Version 1)
Quarter: 2020Q4

REPORT INFORMATION
  Report Type: Spontaneous
  Country: US (occurrence: US)
  Receive Date: 20201117
  Receipt Date: 20201117
  Transmission Date: 20210114
  Serious: Yes (Hospitalization)
  Sender: FDA-Public Use
  Company Number: None

PATIENT
  Sex: Female
  Weight: 94.5 kg

DRUGS (14)
  1. ARNUITY ELLIPTA [Concomitant]
     Active Substance: FLUTICASONE FUROATE
  2. HYDROXYUREA. [Concomitant]
     Active Substance: HYDROXYUREA
  3. AMIODARONE [Concomitant]
     Active Substance: AMIODARONE
  4. ELIQUIS [Concomitant]
     Active Substance: APIXABAN
  5. IMATINIB. [Suspect]
     Active Substance: IMATINIB MESYLATE
     Indication: ACUTE MYELOID LEUKAEMIA
     Dates: start: 20201027
  6. ATENOLOL. [Concomitant]
     Active Substance: ATENOLOL
  7. VITAMIN B COMPLEX [Concomitant]
     Active Substance: CYANOCOBALAMIN\DEXPANTHENOL\NIACINAMIDE\PYRIDOXINE HYDROCHLORIDE\RIBOFLAVIN 5^-PHOSPHATE SODIUM\THIAMINE HYDROCHLORIDE\VITAMIN B COMPLEX
  8. IMATINIB. [Suspect]
     Active Substance: IMATINIB MESYLATE
     Indication: CHRONIC MYELOID LEUKAEMIA
  9. AMLODIPINE [Concomitant]
     Active Substance: AMLODIPINE BESYLATE
  10. ALBUTEROL. [Concomitant]
     Active Substance: ALBUTEROL
  11. ASPIRIN. [Concomitant]
     Active Substance: ASPIRIN
  12. CALCIUM + VITAMIN D3 [Concomitant]
     Active Substance: CALCIUM\CHOLECALCIFEROL
  13. LOSARTAN. [Concomitant]
     Active Substance: LOSARTAN
  14. PRAVASTATIN. [Concomitant]
     Active Substance: PRAVASTATIN

REACTIONS (1)
  - Hospitalisation [None]
